FAERS Safety Report 4297437-0 (Version None)
Quarter: 2004Q1

REPORT INFORMATION
  Report Type: 
  Country: None (occurrence: None)
  Receive Date: 20040218
  Receipt Date: 20031204
  Transmission Date: 20041129
  Serious: Yes (Hospitalization)
  Sender: FDA-Public Use
  Company Number: FR-ROCHE-353416

PATIENT
  Age: 60 Year
  Sex: Female
  Weight: 51 kg

DRUGS (10)
  1. CELLCEPT [Suspect]
     Route: 048
     Dates: start: 20031107, end: 20031109
  2. CELLCEPT [Suspect]
     Route: 048
     Dates: start: 20031106, end: 20031106
  3. CELLCEPT [Suspect]
     Route: 048
     Dates: start: 20031112
  4. RAPAMUNE [Suspect]
     Route: 048
     Dates: start: 20031107, end: 20031108
  5. RAPAMUNE [Suspect]
     Route: 048
     Dates: start: 20031109, end: 20031111
  6. RAPAMUNE [Suspect]
     Route: 048
     Dates: start: 20031112, end: 20031114
  7. RAPAMUNE [Suspect]
     Route: 048
     Dates: start: 20031125
  8. PROTON PUMP INHIBITOR [Concomitant]
  9. ANTIHYPERTENSIVE DRUG [Concomitant]
  10. THYMOGLOBULIN [Concomitant]
     Dosage: ACTUAL DOSING REGIMEN: 6 NOV 03: 75MG/DAY; 8 NOV 03: 75MG/DAY; 10 NOV 03: 100MG/DAY
     Dates: start: 20031106, end: 20031110

REACTIONS (12)
  - ATRIAL FIBRILLATION [None]
  - COLITIS [None]
  - DIARRHOEA [None]
  - DRUG TOXICITY [None]
  - GLOMERULONEPHRITIS [None]
  - GLUCOSE TOLERANCE IMPAIRED [None]
  - OVERDOSE [None]
  - PANCYTOPENIA [None]
  - RESPIRATORY FAILURE [None]
  - SEPSIS [None]
  - TRANSPLANT REJECTION [None]
  - VENTRICULAR FIBRILLATION [None]
